FAERS Safety Report 24301011 (Version 1)
Quarter: 2024Q3

REPORT INFORMATION
  Report Type: Spontaneous
  Country: US (occurrence: US)
  Receive Date: 20240910
  Receipt Date: 20240910
  Transmission Date: 20241017
  Serious: Yes (Other)
  Sender: NOVO NORDISK
  Company Number: US-NOVOPROD-1278048

PATIENT
  Sex: Male

DRUGS (3)
  1. TRESIBA [Suspect]
     Active Substance: INSULIN DEGLUDEC
     Dosage: 24 IU(DOSE INCREASED)
     Route: 058
     Dates: start: 20240716
  2. TRESIBA [Suspect]
     Active Substance: INSULIN DEGLUDEC
     Indication: Diabetes mellitus
     Dosage: 16 IU
     Route: 058
     Dates: start: 20240716
  3. TRESIBA [Suspect]
     Active Substance: INSULIN DEGLUDEC
     Dosage: SLIDING SCALE
     Route: 058
     Dates: start: 20240716

REACTIONS (3)
  - Pancreatolithiasis [Not Recovered/Not Resolved]
  - Nephrolithiasis [Not Recovered/Not Resolved]
  - Blood glucose increased [Recovered/Resolved]
